FAERS Safety Report 12616580 (Version 1)
Quarter: 2016Q3

REPORT INFORMATION
  Report Type: Spontaneous
  Country: US (occurrence: US)
  Receive Date: 20160802
  Receipt Date: 20160802
  Transmission Date: 20161109
  Serious: No
  Sender: FDA-Public Use
  Company Number: US-IMPAX LABORATORIES, INC-2016-IPXL-00466

PATIENT
  Sex: Female

DRUGS (2)
  1. ALBENZA [Suspect]
     Active Substance: ALBENDAZOLE
     Indication: INFECTION PARASITIC
     Dosage: 200 MG, 1 TABLET ONCE DAILY
     Route: 048
     Dates: start: 201511
  2. ALBENZA [Suspect]
     Active Substance: ALBENDAZOLE
     Dosage: 400 MG, 2 /DAY
     Route: 048
     Dates: start: 201604

REACTIONS (4)
  - Gingival swelling [Unknown]
  - Peripheral swelling [Not Recovered/Not Resolved]
  - Eye swelling [Not Recovered/Not Resolved]
  - Treatment failure [Unknown]

NARRATIVE: CASE EVENT DATE: 201604
